FAERS Safety Report 14450264 (Version 1)
Quarter: 2018Q1

REPORT INFORMATION
  Report Type: Spontaneous
  Country: NL (occurrence: NL)
  Receive Date: 20180129
  Receipt Date: 20180129
  Transmission Date: 20180509
  Serious: Yes (Other)
  Sender: FDA-Public Use
  Company Number: NL-SUN PHARMACEUTICAL INDUSTRIES LTD-2018R1-161357

PATIENT
  Sex: Male

DRUGS (2)
  1. ANDERE GENEESMIDDELENNON SPECIFIED DRUG [Concomitant]
     Indication: PRODUCT USED FOR UNKNOWN INDICATION
     Dosage: UNK
     Route: 065
  2. TAMSULOSIN [Suspect]
     Active Substance: TAMSULOSIN
     Indication: BENIGN PROSTATIC HYPERPLASIA
     Dosage: 1X DAAGS 1 CAPSULE
     Route: 065
     Dates: start: 20171009, end: 20171208

REACTIONS (3)
  - Micturition frequency decreased [Recovering/Resolving]
  - Therapeutic response unexpected [Recovering/Resolving]
  - Micturition disorder [Recovering/Resolving]
